FAERS Safety Report 10487869 (Version 1)
Quarter: 2014Q4

REPORT INFORMATION
  Report Type: Spontaneous
  Country: CA (occurrence: CA)
  Receive Date: 20141001
  Receipt Date: 20141001
  Transmission Date: 20150528
  Serious: Yes (Other)
  Sender: FDA-Public Use
  Company Number: CA-TEVA-511895USA

PATIENT
  Age: 19 Year
  Sex: Female

DRUGS (1)
  1. APRI [Suspect]
     Active Substance: DESOGESTREL\ETHINYL ESTRADIOL
     Indication: PRODUCT USED FOR UNKNOWN INDICATION
     Dosage: 0.15MG/0.03MG
     Dates: start: 20140507, end: 20140514

REACTIONS (3)
  - Product substitution issue [Unknown]
  - Nausea [Unknown]
  - Haemorrhage [Unknown]
